FAERS Safety Report 23232006 (Version 1)
Quarter: 2023Q4

REPORT INFORMATION
  Report Type: Spontaneous
  Country: US (occurrence: None)
  Receive Date: 20231127
  Receipt Date: 20231127
  Transmission Date: 20240109
  Serious: Yes (Other)
  Sender: FDA-Public Use
  Company Number: None

PATIENT
  Age: 76 Year
  Sex: Female

DRUGS (7)
  1. REPATHA [Suspect]
     Active Substance: EVOLOCUMAB
     Indication: Hyperlipidaemia
     Dosage: FREQUENCY : EVERY OTHER WEEK;?
     Route: 058
     Dates: start: 20231016, end: 20231030
  2. VITAMIN C [Concomitant]
     Active Substance: ASCORBIC ACID
  3. VITAMIN D [Concomitant]
     Active Substance: VITAMIN D NOS
  4. VITAMINS [Concomitant]
     Active Substance: VITAMINS
  5. NEXLETOL [Concomitant]
     Active Substance: BEMPEDOIC ACID
  6. TELMISARTAN [Concomitant]
     Active Substance: TELMISARTAN
  7. ALPRAZOLAM [Concomitant]
     Active Substance: ALPRAZOLAM

REACTIONS (4)
  - Malaise [None]
  - Feeling abnormal [None]
  - Therapy cessation [None]
  - Blood pressure increased [None]

NARRATIVE: CASE EVENT DATE: 20231017
